FAERS Safety Report 21770805 (Version 4)
Quarter: 2023Q1

REPORT INFORMATION
  Report Type: Report from Study
  Country: PT (occurrence: PT)
  Receive Date: 20221223
  Receipt Date: 20230314
  Transmission Date: 20230418
  Serious: Yes (Other)
  Sender: FDA-Public Use
  Company Number: PT-ABBVIE-4247645

PATIENT
  Age: 71 Year
  Sex: Male

DRUGS (16)
  1. CARBIDOPA\LEVODOPA [Suspect]
     Active Substance: CARBIDOPA\LEVODOPA
     Indication: Multiple system atrophy
     Dosage: 20 MG + 5 MG MORN:9CC;MAINT:4.6CC/H;EXTRA:1CC.
     Route: 050
     Dates: start: 20220928, end: 2022
  2. CARBIDOPA\LEVODOPA [Suspect]
     Active Substance: CARBIDOPA\LEVODOPA
     Dosage: 20 MG + 5 MG ?MORN12CC MAINT 6.7CC/H EXTRA 6CC
     Route: 050
     Dates: start: 2022, end: 20230103
  3. CARBIDOPA\LEVODOPA [Suspect]
     Active Substance: CARBIDOPA\LEVODOPA
     Dosage: 20 MG + 5 MG 12CC;MAINT:6.7CC/H;EXTRA:5CC
     Dates: start: 20230103
  4. CARBIDOPA\LEVODOPA [Suspect]
     Active Substance: CARBIDOPA\LEVODOPA
     Dosage: 20 MG + 5 MG?MORN:12CC;MAINT:6.7CC/H;EXTRA:5CC/DOSE REDUCED
     Route: 050
     Dates: start: 20230103
  5. LOSARTAN [Concomitant]
     Active Substance: LOSARTAN
     Indication: Product used for unknown indication
     Dosage: 25 MILLIGRAM
     Route: 048
  6. LOSARTAN [Concomitant]
     Active Substance: LOSARTAN
     Indication: Product used for unknown indication
     Dosage: FORM STRENGTH: 50 MG?FREQUENCY TEXT: AT BEDTIME?START DATE TEXT: BEFORE DUODOPA
     Route: 048
  7. MIRABEGRON [Concomitant]
     Active Substance: MIRABEGRON
     Indication: Product used for unknown indication
     Dosage: FORM STRENGTH: 50 MILLIGRAM?START DATE TEXT: BEFORE DUODOPA
     Route: 048
  8. SERTRALINE [Concomitant]
     Active Substance: SERTRALINE HYDROCHLORIDE
     Indication: Product used for unknown indication
     Dosage: 50 MILLIGRAM
     Route: 048
  9. SERTRALINE [Concomitant]
     Active Substance: SERTRALINE HYDROCHLORIDE
     Indication: Product used for unknown indication
     Dosage: FREQUENCY TEXT: AT DINNER?START DATE TEXT: BEFORE DUODOPA?FORM STRENGTH: 50 MILLIGRAM
     Route: 048
  10. CLOZAPINE [Concomitant]
     Active Substance: CLOZAPINE
     Indication: Product used for unknown indication
     Dosage: 25 MILLIGRAM
     Route: 048
  11. CLOZAPINE [Concomitant]
     Active Substance: CLOZAPINE
     Indication: Product used for unknown indication
     Dosage: FORM STRENGTH: 25 MILLIGRAM?FREQUENCY TEXT: AT BEDTIME?START DATE TEXT: BEFORE DUODOPA
     Route: 048
  12. FOLIC ACID [Concomitant]
     Active Substance: FOLIC ACID
     Indication: Product used for unknown indication
     Route: 048
  13. FOLIC ACID [Concomitant]
     Active Substance: FOLIC ACID
     Indication: Product used for unknown indication
     Dosage: FREQUENCY TEXT: AT LUNCH?START DATE TEXT: AFTER DUODOPA
     Route: 048
  14. MIDODRINE HYDROCHLORIDE [Concomitant]
     Active Substance: MIDODRINE HYDROCHLORIDE
     Indication: Product used for unknown indication
     Dosage: FORM STRENGTH: 2.5 MG MILLIGRAM?FREQUENCY TEXT: AT BREAKFAST AND AT LUNCH?START DATE TEXT: BEFORE...
     Route: 048
  15. RIVOTRIL [Concomitant]
     Active Substance: CLONAZEPAM
     Indication: Product used for unknown indication
     Dosage: FORM STRENGTH: 0.5 MG MILLIGRAM?FREQUENCY TEXT: 1+1/2BREAKFAST;1+1/2LUNCH; 1BEDTIME?START DATE TE...
     Route: 048
  16. SINEMET CR [Concomitant]
     Active Substance: CARBIDOPA\LEVODOPA
     Indication: Product used for unknown indication
     Dosage: 200 + 50?FREQUENCY TEXT: AT BEDTIME?START DATE TEXT: BEFORE DUODOPA
     Route: 048

REACTIONS (7)
  - Weight decreased [Not Recovered/Not Resolved]
  - Oromandibular dystonia [Recovered/Resolved]
  - Decreased appetite [Recovering/Resolving]
  - Dyskinesia [Recovered/Resolved]
  - Nausea [Recovered/Resolved]
  - Dysphagia [Not Recovered/Not Resolved]
  - Dysphagia [Not Recovered/Not Resolved]

NARRATIVE: CASE EVENT DATE: 20220901
